FAERS Safety Report 7345528-X (Version None)
Quarter: 2011Q1

REPORT INFORMATION
  Report Type: 
  Country: None (occurrence: None)
  Receive Date: 20110310
  Receipt Date: 20110302
  Transmission Date: 20110831
  Serious: Yes (Other)
  Sender: FDA-Public Use
  Company Number: CA-GENENTECH-312009

PATIENT

DRUGS (3)
  1. SULFATRIM [Concomitant]
     Indication: PRODUCT USED FOR UNKNOWN INDICATION
  2. NEUPOGEN [Suspect]
     Indication: PRODUCT USED FOR UNKNOWN INDICATION
  3. MABTHERA [Suspect]
     Indication: PRODUCT USED FOR UNKNOWN INDICATION
     Dosage: 700 MG, Q4W

REACTIONS (2)
  - RENAL DISORDER [None]
  - CHEST PAIN [None]
